FAERS Safety Report 5878346-X (Version None)
Quarter: 2008Q3

REPORT INFORMATION
  Report Type: 
  Country: None (occurrence: None)
  Receive Date: 20080911
  Receipt Date: 20080902
  Transmission Date: 20090109
  Serious: Yes (Other)
  Sender: FDA-Public Use
  Company Number: CZ-SANOFI-SYNTHELABO-A01200810601

PATIENT
  Age: 16 Year
  Sex: Male

DRUGS (2)
  1. ZALDIAR [Suspect]
     Indication: PROCEDURAL PAIN
     Dosage: UNK
     Route: 048
     Dates: start: 20080825, end: 20080825
  2. STILNOX [Suspect]
     Indication: INSOMNIA
     Route: 048
     Dates: start: 20080825, end: 20080825

REACTIONS (1)
  - PSYCHOTIC DISORDER [None]
